FAERS Safety Report 24129042 (Version 1)
Quarter: 2024Q3

REPORT INFORMATION
  Report Type: Report from Study
  Country: US (occurrence: US)
  Receive Date: 20240723
  Receipt Date: 20240723
  Transmission Date: 20241016
  Serious: Yes (Other)
  Sender: ABBVIE
  Company Number: US-ABBVIE-5844578

PATIENT
  Sex: Male

DRUGS (3)
  1. RINVOQ [Suspect]
     Active Substance: UPADACITINIB
     Indication: Dermatitis atopic
     Route: 048
     Dates: start: 20240525
  2. ZINC [Concomitant]
     Active Substance: ZINC
     Indication: Product used for unknown indication
  3. FISH OIL [Concomitant]
     Active Substance: FISH OIL
     Indication: Product used for unknown indication

REACTIONS (4)
  - Prostate cancer [Unknown]
  - Fatigue [Not Recovered/Not Resolved]
  - Full blood count abnormal [Unknown]
  - Somnolence [Unknown]

NARRATIVE: CASE EVENT DATE: 20240101
